FAERS Safety Report 7806591-2 (Version None)
Quarter: 2011Q4

REPORT INFORMATION
  Report Type: 
  Country: None (occurrence: None)
  Receive Date: 20111011
  Receipt Date: 20110930
  Transmission Date: 20120403
  Serious: Yes (Other)
  Sender: FDA-Public Use
  Company Number: US-NOVOPROD-336246

PATIENT

DRUGS (3)
  1. NORDITROPIN FLEXPRO [Suspect]
     Indication: GROWTH RETARDATION
     Dosage: UNK
     Route: 058
     Dates: start: 20090601, end: 20090901
  2. LUPRON [Concomitant]
     Indication: FOCAL NODULAR HYPERPLASIA
  3. NORDITROPIN FLEXPRO [Suspect]
     Dosage: 1.8 MG, QD
     Route: 058
     Dates: start: 20101001, end: 20110901

REACTIONS (2)
  - FOCAL NODULAR HYPERPLASIA [None]
  - NEOPLASM PROGRESSION [None]
